FAERS Safety Report 10024427 (Version 1)
Quarter: 2014Q1

REPORT INFORMATION
  Report Type: Spontaneous
  Country: US (occurrence: None)
  Receive Date: 20140318
  Receipt Date: 20140318
  Transmission Date: 20141002
  Serious: Yes (Hospitalization)
  Sender: FDA-Public Use
  Company Number: 2014-US-002983

PATIENT
  Age: 63 Year
  Sex: Female

DRUGS (2)
  1. XYREM [Suspect]
     Indication: CATAPLEXY
     Route: 048
     Dates: start: 200705, end: 2013
  2. XYREM [Suspect]
     Indication: NARCOLEPSY
     Route: 048
     Dates: start: 200705, end: 2013

REACTIONS (8)
  - Palpitations [None]
  - Dyspnoea [None]
  - Nervousness [None]
  - Transient ischaemic attack [None]
  - Type 2 diabetes mellitus [None]
  - Asthma [None]
  - Complex regional pain syndrome [None]
  - Migraine [None]
